FAERS Safety Report 18308830 (Version 1)
Quarter: 2020Q3

REPORT INFORMATION
  Report Type: Spontaneous
  Country: CN (occurrence: CN)
  Receive Date: 20200924
  Receipt Date: 20200924
  Transmission Date: 20201103
  Serious: Yes (Other)
  Sender: FDA-Public Use
  Company Number: CN-ASTRAZENECA-2020SF18346

PATIENT
  Age: 48 Year
  Sex: Male
  Weight: 72.5 kg

DRUGS (2)
  1. TRADITIONAL CHINESE MEDICINE [Concomitant]
     Active Substance: HERBALS\HOMEOPATHICS
  2. IRESSA [Suspect]
     Active Substance: GEFITINIB
     Indication: NON-SMALL CELL LUNG CANCER
     Dosage: 1 TABLET DAILY
     Route: 048

REACTIONS (4)
  - Metastases to bone [Unknown]
  - Drug resistance [Unknown]
  - Drug ineffective [Unknown]
  - Metastases to central nervous system [Unknown]
